FAERS Safety Report 5682585-0 (Version None)
Quarter: 2008Q1

REPORT INFORMATION
  Report Type: 
  Country: None (occurrence: None)
  Receive Date: 20080327
  Receipt Date: 20071220
  Transmission Date: 20080703
  Serious: No
  Sender: FDA-Public Use
  Company Number: US-BRISTOL-MYERS SQUIBB COMPANY-14021414

PATIENT
  Age: 54 Year
  Sex: Female
  Weight: 61 kg

DRUGS (7)
  1. ORENCIA [Suspect]
     Indication: RHEUMATOID ARTHRITIS
     Dosage: NO. OF VIALS/BATCH NO./EXP DATE: 1/7G27705/JAN-2009, 2/7H20190/NOV-2008, 3/7H26114/JAN-2009
     Route: 042
     Dates: start: 20071101, end: 20071115
  2. EFFEXOR [Concomitant]
  3. VERAPAMIL HCL [Concomitant]
  4. NEURONTIN [Concomitant]
  5. ULTRACET [Concomitant]
  6. ULTRAM [Concomitant]
  7. RELPAX [Concomitant]

REACTIONS (1)
  - MIGRAINE [None]
